FAERS Safety Report 20263909 (Version 1)
Quarter: 2021Q4

REPORT INFORMATION
  Report Type: Spontaneous
  Country: US (occurrence: None)
  Receive Date: 20211230
  Receipt Date: 20211230
  Transmission Date: 20220303
  Serious: Yes (Other)
  Sender: FDA-Public Use
  Company Number: None

PATIENT
  Age: 64 Year
  Sex: Male
  Weight: 105.75 kg

DRUGS (2)
  1. MEPERIDINE [Suspect]
     Active Substance: MEPERIDINE
     Indication: Large intestinal polypectomy
     Dosage: OTHER FREQUENCY : ONE TIME DOSE;?
     Route: 042
  2. MEPERIDINE [Suspect]
     Active Substance: MEPERIDINE
     Indication: Sedative therapy

REACTIONS (2)
  - Flushing [None]
  - Tachycardia [None]

NARRATIVE: CASE EVENT DATE: 20211227
